FAERS Safety Report 11266796 (Version 1)
Quarter: 2015Q3

REPORT INFORMATION
  Report Type: Spontaneous
  Country: FR (occurrence: FR)
  Receive Date: 20150713
  Receipt Date: 20150713
  Transmission Date: 20151125
  Serious: Yes (Hospitalization, Other)
  Sender: FDA-Public Use
  Company Number: FR-ELI_LILLY_AND_COMPANY-FR201507000278

PATIENT
  Age: 64 Year
  Sex: Male

DRUGS (8)
  1. CLOPIXOL                           /00876702/ [Suspect]
     Active Substance: ZUCLOPENTHIXOL ACETATE
     Indication: PRODUCT USED FOR UNKNOWN INDICATION
     Dosage: 200 MG, OTHER
     Route: 030
     Dates: start: 20150212, end: 20150526
  2. EUPANTOL [Concomitant]
     Active Substance: PANTOPRAZOLE SODIUM
     Dosage: 20 MG, EACH EVENING
     Route: 065
     Dates: start: 20141218
  3. HEPARIN [Concomitant]
     Active Substance: HEPARIN SODIUM
     Dosage: UNK, UNKNOWN
     Route: 065
     Dates: start: 201505
  4. PARKINANE LP [Concomitant]
     Active Substance: TRIHEXYPHENIDYL HYDROCHLORIDE
     Dosage: 5 MG, EACH MORNING
     Route: 065
     Dates: start: 20150216
  5. UVEDOSE [Concomitant]
     Active Substance: CHOLECALCIFEROL
     Dosage: 1 DF, OTHER
     Route: 065
     Dates: start: 201412
  6. XARELTO [Concomitant]
     Active Substance: RIVAROXABAN
     Dosage: UNK, UNKNOWN
     Route: 065
     Dates: start: 201505
  7. ZYPREXA [Suspect]
     Active Substance: OLANZAPINE
     Indication: PRODUCT USED FOR UNKNOWN INDICATION
     Dosage: 10 MG, EACH EVENING
     Route: 048
     Dates: start: 20150221, end: 20150526
  8. KETODERM                           /00532501/ [Concomitant]
     Dosage: 1 DF, 2/W
     Route: 065
     Dates: start: 201412

REACTIONS (5)
  - Deep vein thrombosis [Recovered/Resolved]
  - Pulmonary embolism [Recovered/Resolved]
  - Bundle branch block [Unknown]
  - Ventricular tachycardia [Unknown]
  - Urinary retention [Unknown]

NARRATIVE: CASE EVENT DATE: 201505
